FAERS Safety Report 7663601-3 (Version None)
Quarter: 2011Q3

REPORT INFORMATION
  Report Type: 
  Country: None (occurrence: None)
  Receive Date: 20110805
  Receipt Date: 20100729
  Transmission Date: 20111222
  Serious: No
  Sender: FDA-Public Use
  Company Number: US-ABBOTT-10P-163-0660623-00

PATIENT
  Sex: Male
  Weight: 106.24 kg

DRUGS (3)
  1. NIASPAN [Suspect]
     Dosage: 2-500 MG TAB AT BEDTIME
     Route: 048
     Dates: start: 20080201, end: 20080701
  2. ASPIRIN [Concomitant]
     Indication: PRODUCT USED FOR UNKNOWN INDICATION
     Route: 048
  3. NIASPAN [Suspect]
     Indication: BLOOD CHOLESTEROL INCREASED
     Dosage: AT BEDTIME
     Route: 048
     Dates: start: 20080101, end: 20080201

REACTIONS (3)
  - SENSORY DISTURBANCE [None]
  - PRURITUS [None]
  - FLUSHING [None]
